FAERS Safety Report 5818514-6 (Version None)
Quarter: 2008Q3

REPORT INFORMATION
  Report Type: 
  Country: None (occurrence: None)
  Receive Date: 20080717
  Receipt Date: 20080702
  Transmission Date: 20090109
  Serious: Yes (Other)
  Sender: FDA-Public Use
  Company Number: 2008S1011683

PATIENT
  Age: 66 Year
  Sex: Female
  Weight: 78.0187 kg

DRUGS (5)
  1. FENTANYL TRANSDERMAL SYSTEM [Suspect]
     Indication: SCIATICA
     Dosage: 50 UG;EVERY HOUR;TRANSDERMAL
     Route: 062
     Dates: start: 20080623, end: 20080624
  2. TRACLEER [Concomitant]
  3. AVALIDE [Concomitant]
  4. IRON [Concomitant]
  5. VITAMIN TAB [Concomitant]

REACTIONS (3)
  - CONFUSIONAL STATE [None]
  - DRUG EFFECT INCREASED [None]
  - PALPITATIONS [None]
